FAERS Safety Report 6093126-0 (Version None)
Quarter: 2009Q1

REPORT INFORMATION
  Report Type: 
  Country: None (occurrence: None)
  Receive Date: 20090226
  Receipt Date: 20090223
  Transmission Date: 20090719
  Serious: Yes (Death, Life-Threatening, Hospitalization)
  Sender: FDA-Public Use
  Company Number: FR-JNJFOC-20090205415

PATIENT
  Sex: Female

DRUGS (5)
  1. RISPERDAL [Suspect]
     Indication: MENTAL DISORDER
     Route: 048
  2. ALLOPURINOL [Suspect]
     Indication: GOUT
     Route: 048
  3. COLCHIMAX [Suspect]
     Indication: GOUT
     Route: 048
  4. PARACETAMOL [Concomitant]
     Indication: PAIN
     Route: 048
  5. DI-ANTALVIC [Concomitant]
     Indication: PAIN
     Route: 065

REACTIONS (3)
  - AGRANULOCYTOSIS [None]
  - BICYTOPENIA [None]
  - PULMONARY EMBOLISM [None]
